APPROVED DRUG PRODUCT: DAUNORUBICIN HYDROCHLORIDE
Active Ingredient: DAUNORUBICIN HYDROCHLORIDE
Strength: EQ 5MG BASE/VIAL
Dosage Form/Route: INJECTABLE;INJECTION
Application: A065034 | Product #001
Applicant: FRESENIUS KABI USA LLC
Approved: Nov 20, 2001 | RLD: No | RS: No | Type: DISCN